FAERS Safety Report 10279795 (Version 1)
Quarter: 2014Q3

REPORT INFORMATION
  Report Type: Spontaneous
  Country: CH (occurrence: None)
  Receive Date: 20140701
  Receipt Date: 20140701
  Transmission Date: 20150326
  Serious: Yes (Other)
  Sender: FDA-Public Use
  Company Number: 20140360

PATIENT
  Sex: Female

DRUGS (4)
  1. VENOFER [Suspect]
     Active Substance: IRON SUCROSE
     Indication: ANAEMIA
     Dosage: 200 MG, INFUSIONS TOTAL TRANSPLACENTAL
     Route: 064
  2. RITONAVIR [Concomitant]
     Active Substance: RITONAVIR
  3. TENOFOVIR [Concomitant]
     Active Substance: TENOFOVIR
  4. EMTRICITABINE [Concomitant]
     Active Substance: EMTRICITABINE

REACTIONS (7)
  - Lymphadenopathy [None]
  - CD4 lymphocytes increased [None]
  - Maternal drugs affecting foetus [None]
  - HIV infection [None]
  - Rash [None]
  - Neutropenia [None]
  - Pyrexia [None]
